FAERS Safety Report 5313911-X (Version None)
Quarter: 2007Q2

REPORT INFORMATION
  Report Type: 
  Country: None (occurrence: None)
  Receive Date: 20070501
  Receipt Date: 20070424
  Transmission Date: 20071010
  Serious: Yes (Other)
  Sender: FDA-Public Use
  Company Number: 2007UW07858

PATIENT
  Sex: Male

DRUGS (4)
  1. CRESTOR [Suspect]
     Route: 048
  2. ZESTORETIC [Concomitant]
     Dosage: 20/125
  3. SOTALOL HYDROCHLORIDE [Concomitant]
  4. VOLTAREN [Concomitant]

REACTIONS (1)
  - AGGRESSION [None]
